FAERS Safety Report 6990443-4 (Version None)
Quarter: 2010Q3

REPORT INFORMATION
  Report Type: 
  Country: None (occurrence: None)
  Receive Date: 20100916
  Receipt Date: 20100609
  Transmission Date: 20110219
  Serious: Yes (Other)
  Sender: FDA-Public Use
  Company Number: GB-PFIZER INC-2010072201

PATIENT
  Age: 61 Year
  Sex: Female

DRUGS (3)
  1. LYRICA [Suspect]
     Indication: NEURALGIA
     Dosage: 100 MG, DAILY
  2. LYRICA [Suspect]
     Dosage: 25MG IN MORNING, 50MG AT NIGHT
  3. PARAMAX [Concomitant]
     Dosage: UNK

REACTIONS (4)
  - ABNORMAL SENSATION IN EYE [None]
  - DIZZINESS [None]
  - MIGRAINE [None]
  - OPTIC ISCHAEMIC NEUROPATHY [None]
